FAERS Safety Report 9243881 (Version 1)
Quarter: 2013Q1

REPORT INFORMATION
  Report Type: Spontaneous
  Country: US (occurrence: None)
  Receive Date: 20121123
  Receipt Date: 20121123
  Transmission Date: 20140127
  Serious: No
  Sender: FDA-Public Use
  Company Number: 362815

PATIENT
  Sex: Male

DRUGS (3)
  1. VICTOZA [Suspect]
     Route: 058
  2. NOVOLIN R (INSULIN HUMAN) [Concomitant]
  3. METFORMIN [Concomitant]

REACTIONS (6)
  - Chills [None]
  - Feeling cold [None]
  - Decreased appetite [None]
  - Constipation [None]
  - Nausea [None]
  - Blood glucose abnormal [None]
